FAERS Safety Report 17609275 (Version 2)
Quarter: 2020Q2

REPORT INFORMATION
  Report Type: Spontaneous
  Country: US (occurrence: US)
  Receive Date: 20200401
  Receipt Date: 20200401
  Transmission Date: 20200713
  Serious: Yes (Hospitalization, Other)
  Sender: FDA-Public Use
  Company Number: US-EMCURE PHARMACEUTICALS LTD-2020-EPL-000358

PATIENT
  Age: 18 Year
  Sex: Female

DRUGS (6)
  1. CYTARABINE. [Suspect]
     Active Substance: CYTARABINE
     Indication: PRIMARY MEDIASTINAL LARGE B-CELL LYMPHOMA
     Dosage: UNK
  2. PEMBROLIZUMAB. [Suspect]
     Active Substance: PEMBROLIZUMAB
     Indication: PRIMARY MEDIASTINAL LARGE B-CELL LYMPHOMA
     Dosage: 200 MILLIGRAM, CYCLIC, Q3 WEEK
  3. BICNU [Suspect]
     Active Substance: CARMUSTINE
     Indication: PRIMARY MEDIASTINAL LARGE B-CELL LYMPHOMA
     Dosage: UNK
  4. SULFAMETHOXAZOLE, TRIMETHOPRIM [Concomitant]
     Active Substance: SULFAMETHOXAZOLE\TRIMETHOPRIM
     Indication: PNEUMOCYSTIS JIROVECII PNEUMONIA
     Dosage: 200 MILLIGRAM, Q3 WEEK
  5. MELPHALAN. [Suspect]
     Active Substance: MELPHALAN
     Indication: PRIMARY MEDIASTINAL LARGE B-CELL LYMPHOMA
     Dosage: UNK
  6. ETOPOSIDE. [Suspect]
     Active Substance: ETOPOSIDE
     Indication: PRIMARY MEDIASTINAL LARGE B-CELL LYMPHOMA
     Dosage: UNK

REACTIONS (3)
  - Diaphragmatic paralysis [Unknown]
  - Pneumocystis jirovecii pneumonia [Recovered/Resolved]
  - Pulmonary embolism [Unknown]
